FAERS Safety Report 7256600-7 (Version None)
Quarter: 2011Q1

REPORT INFORMATION
  Report Type: 
  Country: None (occurrence: None)
  Receive Date: 20110129
  Receipt Date: 20100701
  Transmission Date: 20110831
  Serious: No
  Sender: FDA-Public Use
  Company Number: US-ABBOTT-10P-163-0654864-00

PATIENT
  Age: 41 Year
  Sex: Female

DRUGS (5)
  1. ACYCLOVIR [Concomitant]
     Indication: PRODUCT USED FOR UNKNOWN INDICATION
     Dosage: 1 IN AM; 1 IN PM
  2. ANTIVIRALS NOS [Concomitant]
     Indication: ORAL HERPES
  3. METHOCARBAMOL [Concomitant]
     Indication: MUSCLE RELAXANT THERAPY
     Dosage: TWO TABS AS NEEDED
  4. HUMIRA [Suspect]
     Indication: CROHN'S DISEASE
  5. DIPHENHYDRAMINE [Concomitant]
     Indication: INSOMNIA

REACTIONS (1)
  - INJECTION SITE HAEMATOMA [None]
